FAERS Safety Report 23559520 (Version 1)
Quarter: 2024Q1

REPORT INFORMATION
  Report Type: Spontaneous
  Country: US (occurrence: US)
  Receive Date: 20240223
  Receipt Date: 20240223
  Transmission Date: 20240410
  Serious: No
  Sender: FDA-Public Use
  Company Number: US-ELI_LILLY_AND_COMPANY-US202402011523

PATIENT

DRUGS (1)
  1. BEBTELOVIMAB [Suspect]
     Active Substance: BEBTELOVIMAB
     Indication: COVID-19
     Dosage: UNK, UNKNOWN
     Route: 065

REACTIONS (9)
  - Taste disorder [Recovered/Resolved]
  - Parosmia [Recovered/Resolved]
  - Dysgeusia [Unknown]
  - Impaired gastric emptying [Unknown]
  - Asthma [Unknown]
  - Depression [Unknown]
  - Histrionic personality disorder [Unknown]
  - Swollen tongue [Unknown]
  - Irritable bowel syndrome [Unknown]
